FAERS Safety Report 21052697 (Version 6)
Quarter: 2024Q1

REPORT INFORMATION
  Report Type: Report from Study
  Country: DE (occurrence: DE)
  Receive Date: 20220707
  Receipt Date: 20240102
  Transmission Date: 20240410
  Serious: Yes (Other)
  Sender: FDA-Public Use
  Company Number: DE-PFM-2022-04445

PATIENT
  Age: 64 Year
  Sex: Female
  Weight: 67 kg

DRUGS (8)
  1. BRAFTOVI [Suspect]
     Active Substance: ENCORAFENIB
     Indication: Colorectal cancer
     Dosage: 150 MG, QD (1/DAY)
     Route: 048
     Dates: start: 20220110, end: 20220117
  2. BRAFTOVI [Suspect]
     Active Substance: ENCORAFENIB
     Dosage: 300 MG/ DAY
     Route: 048
     Dates: start: 20220110
  3. BRAFTOVI [Suspect]
     Active Substance: ENCORAFENIB
     Dosage: 225 MG/ DAY
     Route: 048
     Dates: start: 20220323
  4. BRAFTOVI [Suspect]
     Active Substance: ENCORAFENIB
     Dosage: 150 MG, DAILY
     Route: 048
     Dates: end: 20220419
  5. CETUXIMAB [Suspect]
     Active Substance: CETUXIMAB
     Indication: Colorectal cancer
     Dosage: 250 MG/M2, WEEKLY  (LIQUID FORMULATION)
     Route: 042
     Dates: start: 20220110, end: 20220411
  6. Dexamethason - ratiopharm [Concomitant]
     Indication: Prophylaxis
     Dosage: 4 MG, WEEKLY
     Route: 048
     Dates: start: 20220110
  7. DIMETHINDENE MALEATE [Concomitant]
     Active Substance: DIMETHINDENE MALEATE
     Indication: Prophylaxis
     Dosage: 4 MG, WEEKLY
     Route: 042
     Dates: start: 20220110
  8. MINOCYCLIN-RATIOPHARM [Concomitant]
     Indication: Prophylaxis
     Dosage: QD
     Route: 048
     Dates: start: 20220110

REACTIONS (4)
  - Second primary malignancy [Recovering/Resolving]
  - Malignant melanoma [Recovering/Resolving]
  - Diarrhoea [Recovered/Resolved]
  - Palmar-plantar erythrodysaesthesia syndrome [Recovering/Resolving]

NARRATIVE: CASE EVENT DATE: 20220314
